FAERS Safety Report 21812538 (Version 1)
Quarter: 2023Q1

REPORT INFORMATION
  Report Type: Report from Study
  Country: US (occurrence: US)
  Receive Date: 20230103
  Receipt Date: 20230103
  Transmission Date: 20230417
  Serious: Yes (Hospitalization)
  Sender: FDA-Public Use
  Company Number: US-ALLERGAN-2242839US

PATIENT
  Sex: Female
  Weight: 117.93 kg

DRUGS (2)
  1. THYROID, UNSPECIFIED [Suspect]
     Active Substance: THYROID, UNSPECIFIED
     Indication: Hypothyroidism
     Dosage: 90 MG, BID
     Route: 048
     Dates: start: 2002
  2. LOSARTAN [Concomitant]
     Active Substance: LOSARTAN
     Indication: Hypertension
     Dosage: UNK

REACTIONS (4)
  - Fall [Recovered/Resolved]
  - Tendon rupture [Recovering/Resolving]
  - Lower limb fracture [Recovering/Resolving]
  - Pain [Recovering/Resolving]

NARRATIVE: CASE EVENT DATE: 20190901
